FAERS Safety Report 5525544-0 (Version None)
Quarter: 2007Q4

REPORT INFORMATION
  Report Type: 
  Country: None (occurrence: None)
  Receive Date: 20071126
  Receipt Date: 20071120
  Transmission Date: 20080405
  Serious: Yes (Other)
  Sender: FDA-Public Use
  Company Number: B0451790A

PATIENT
  Age: 21 Year
  Sex: Female
  Weight: 45 kg

DRUGS (3)
  1. PAXIL [Suspect]
     Indication: DEPRESSION
     Route: 048
     Dates: start: 20060403
  2. MYSLEE [Concomitant]
     Indication: INSOMNIA
     Dosage: 10MG PER DAY
     Route: 048
     Dates: start: 20060508
  3. MAGLAX [Concomitant]
     Indication: CONSTIPATION
     Dosage: 660MG PER DAY
     Route: 048
     Dates: start: 20061117

REACTIONS (2)
  - ABORTION INDUCED [None]
  - DRUG EXPOSURE DURING PREGNANCY [None]
